FAERS Safety Report 7880163-6 (Version None)
Quarter: 2011Q4

REPORT INFORMATION
  Report Type: 
  Country: None (occurrence: None)
  Receive Date: 20111101
  Receipt Date: 20111025
  Transmission Date: 20120403
  Serious: Yes (Life-Threatening, Hospitalization, Other)
  Sender: FDA-Public Use
  Company Number: JP-PFIZER INC-2011215891

PATIENT
  Age: 84 Year
  Sex: Female

DRUGS (4)
  1. MUCOSTA [Concomitant]
     Dosage: UNK
     Route: 048
     Dates: start: 20110829
  2. CELECOXIB [Suspect]
     Indication: RHEUMATOID ARTHRITIS
     Dosage: 100 MG, 2X/DAY
     Route: 048
     Dates: start: 20090101, end: 20110831
  3. METHYCOBAL [Concomitant]
     Dosage: UNK
     Route: 048
  4. REBAMIPIDE [Concomitant]
     Dosage: UNK
     Dates: end: 20110829

REACTIONS (3)
  - HYPERKALAEMIA [None]
  - RENAL IMPAIRMENT [None]
  - ATRIOVENTRICULAR BLOCK COMPLETE [None]
